FAERS Safety Report 23230224 (Version 1)
Quarter: 2023Q4

REPORT INFORMATION
  Report Type: Spontaneous
  Country: JP (occurrence: JP)
  Receive Date: 20231127
  Receipt Date: 20231127
  Transmission Date: 20240109
  Serious: Yes (Other)
  Sender: FDA-Public Use
  Company Number: JP-TAKEDA-2023TJP015591

PATIENT
  Age: 47 Year
  Sex: Male

DRUGS (1)
  1. ALUNBRIG [Suspect]
     Active Substance: BRIGATINIB
     Indication: Product used for unknown indication
     Dosage: 180 MILLIGRAM
     Route: 065
     Dates: start: 20230920, end: 20231118

REACTIONS (2)
  - Disease progression [Unknown]
  - Metastases to pleura [Unknown]

NARRATIVE: CASE EVENT DATE: 20231118
